FAERS Safety Report 5834402-3 (Version None)
Quarter: 2008Q3

REPORT INFORMATION
  Report Type: 
  Country: None (occurrence: None)
  Receive Date: 20080805
  Receipt Date: 20080724
  Transmission Date: 20090109
  Serious: Yes (Other)
  Sender: FDA-Public Use
  Company Number: IE-PFIZER INC-2008055058

PATIENT
  Age: 26 Year
  Sex: Female

DRUGS (1)
  1. CHANTIX [Suspect]
     Indication: SMOKING CESSATION THERAPY
     Route: 048

REACTIONS (6)
  - ANXIETY [None]
  - DEPRESSED MOOD [None]
  - PANIC DISORDER [None]
  - STRESS [None]
  - SUICIDAL IDEATION [None]
  - VERTIGO [None]
